FAERS Safety Report 6006069-5 (Version None)
Quarter: 2008Q4

REPORT INFORMATION
  Report Type: 
  Country: None (occurrence: None)
  Receive Date: 20081217
  Receipt Date: 20081208
  Transmission Date: 20090506
  Serious: Yes (Hospitalization, Other)
  Sender: FDA-Public Use
  Company Number: US-ELI_LILLY_AND_COMPANY-US200809004479

PATIENT
  Sex: Female
  Weight: 94.875 kg

DRUGS (13)
  1. BYETTA [Suspect]
     Indication: DIABETES MELLITUS
     Dosage: 5 UG, 2/D
     Route: 058
     Dates: start: 20050907, end: 20051007
  2. BYETTA [Suspect]
     Dosage: 10 UG, 2/D
     Route: 058
     Dates: start: 20051007, end: 20060816
  3. BYETTA [Suspect]
     Dosage: UNK, 2/D
     Route: 058
     Dates: start: 20070104, end: 20080826
  4. SYNTHROID [Concomitant]
     Indication: HYPOTHYROIDISM
     Dosage: 150 UG, UNK
     Route: 048
  5. PREMARIN [Concomitant]
     Dosage: 0.9 MG, UNK
     Route: 048
  6. ZYRTEC [Concomitant]
     Dosage: 10 MG, UNK
     Route: 048
  7. MAXZIDE [Concomitant]
     Indication: HYPERTENSION
     Dosage: 12.5 MG, DAILY (1/D)
     Route: 048
  8. TRICOR [Concomitant]
     Indication: HYPERLIPIDAEMIA
     Dosage: 145 MG, UNK
     Route: 048
  9. VASOTEC [Concomitant]
     Dosage: 5 MG, UNK
     Route: 048
  10. AMARYL [Concomitant]
     Indication: DIABETES MELLITUS
     Dosage: 4 MG, 2/D
     Route: 048
  11. LEVEMIR [Concomitant]
     Indication: DIABETES MELLITUS
     Dosage: 16 U, EACH MORNING
     Route: 058
  12. LEVEMIR [Concomitant]
     Dosage: 17 U, EACH EVENING
     Route: 058
  13. NEXIUM [Concomitant]
     Dosage: 40 MG, DAILY (1/D)

REACTIONS (5)
  - ABDOMINAL PAIN UPPER [None]
  - BLOOD TRIGLYCERIDES INCREASED [None]
  - PANCREATITIS [None]
  - PANCREATITIS CHRONIC [None]
  - WEIGHT DECREASED [None]
